FAERS Safety Report 23047165 (Version 1)
Quarter: 2023Q4

REPORT INFORMATION
  Report Type: Spontaneous
  Country: AR (occurrence: AR)
  Receive Date: 20231009
  Receipt Date: 20231009
  Transmission Date: 20240110
  Serious: Yes (Death, Hospitalization)
  Sender: FDA-Public Use
  Company Number: AR-002147023-NVSC2023AR214299

PATIENT
  Sex: Male

DRUGS (3)
  1. OMNITROPE [Suspect]
     Active Substance: SOMATROPIN
     Indication: Hypopituitarism
     Dosage: 5 MG
     Route: 065
  2. HYDROCORTISONE [Concomitant]
     Active Substance: HYDROCORTISONE
     Indication: Product used for unknown indication
     Dosage: UNK
     Route: 065
  3. LEVOTHYROXINE [Concomitant]
     Active Substance: LEVOTHYROXINE
     Indication: Product used for unknown indication
     Dosage: UNK
     Route: 065

REACTIONS (6)
  - Pyrexia [Fatal]
  - Vomiting [Fatal]
  - Blood glucose increased [Fatal]
  - Cardio-respiratory arrest [Fatal]
  - Dyspnoea [Fatal]
  - Skin lesion [Fatal]
